FAERS Safety Report 21488194 (Version 1)
Quarter: 2022Q4

REPORT INFORMATION
  Report Type: Spontaneous
  Country: US (occurrence: None)
  Receive Date: 20221020
  Receipt Date: 20221020
  Transmission Date: 20230113
  Serious: No
  Sender: FDA-Public Use
  Company Number: None

PATIENT
  Age: 72 Year
  Sex: Female
  Weight: 83.82 kg

DRUGS (12)
  1. CAPECITABINE [Suspect]
     Active Substance: CAPECITABINE
     Indication: Breast cancer female
     Dosage: FREQUENCY : TWICE A DAY;?
     Route: 048
  2. DULOXETINE [Concomitant]
     Active Substance: DULOXETINE
  3. EUTHYROX [Concomitant]
     Active Substance: LEVOTHYROXINE SODIUM
  4. GABAPENTIN [Concomitant]
     Active Substance: GABAPENTIN
  5. HYDROCHLOROTHIAZIDE [Concomitant]
     Active Substance: HYDROCHLOROTHIAZIDE
  6. KISQALI [Concomitant]
     Active Substance: RIBOCICLIB
  7. LISINOPRIL [Concomitant]
     Active Substance: LISINOPRIL
  8. ONDANSETRON [Concomitant]
     Active Substance: ONDANSETRON
  9. PROCHLORPERAZINE [Concomitant]
     Active Substance: PROCHLORPERAZINE
  10. SYMBICORT [Concomitant]
     Active Substance: BUDESONIDE\FORMOTEROL FUMARATE DIHYDRATE
  11. TRAZODONE [Concomitant]
     Active Substance: TRAZODONE HYDROCHLORIDE
  12. VENTOLIN [Concomitant]
     Active Substance: ALBUTEROL SULFATE

REACTIONS (1)
  - Disease progression [None]
